FAERS Safety Report 8018844-6 (Version None)
Quarter: 2012Q1

REPORT INFORMATION
  Report Type: 
  Country: None (occurrence: None)
  Receive Date: 20120103
  Receipt Date: 20111220
  Transmission Date: 20120608
  Serious: Yes (Hospitalization, Other)
  Sender: FDA-Public Use
  Company Number: US-PFIZER INC-2011314737

PATIENT
  Sex: Female

DRUGS (3)
  1. BENICAR [Suspect]
     Indication: HYPERTENSION
     Dosage: 40 MG, 1X/DAY
     Route: 048
     Dates: start: 20060101, end: 20090901
  2. BENICAR [Suspect]
     Dosage: 20 MG (20 MG,1/2 (40MG) TABLET QD)
     Route: 046
     Dates: start: 20090901
  3. LIPITOR [Suspect]
     Indication: HYPERLIPIDAEMIA
     Dosage: UNK
     Route: 048
     Dates: end: 20090901

REACTIONS (6)
  - KIDNEY INFECTION [None]
  - INFLUENZA LIKE ILLNESS [None]
  - DEPRESSED LEVEL OF CONSCIOUSNESS [None]
  - HELICOBACTER INFECTION [None]
  - RHABDOMYOLYSIS [None]
  - DRUG ADMINISTRATION ERROR [None]
